FAERS Safety Report 5200272-X (Version None)
Quarter: 2007Q1

REPORT INFORMATION
  Report Type: 
  Country: None (occurrence: None)
  Receive Date: 20070105
  Receipt Date: 20061229
  Transmission Date: 20070707
  Serious: Yes (Hospitalization, Other)
  Sender: FDA-Public Use
  Company Number: US-PFIZER INC-2006119518

PATIENT
  Sex: Female
  Weight: 100.7 kg

DRUGS (13)
  1. LIPITOR [Suspect]
     Indication: BLOOD CHOLESTEROL
  2. LIPITOR [Suspect]
     Indication: HYPERLIPIDAEMIA
  3. CHANTIX [Suspect]
     Indication: SMOKING CESSATION THERAPY
     Dates: start: 20060829, end: 20060916
  4. METOPROLOL SUCCINATE [Concomitant]
     Indication: ATRIAL FIBRILLATION
  5. WARFARIN SODIUM [Concomitant]
     Dosage: DAILY DOSE:7.5MG
  6. WARFARIN SODIUM [Concomitant]
     Dosage: DAILY DOSE:5MG
  7. CLONIDINE [Concomitant]
     Dosage: DAILY DOSE:.01MG
  8. MELATONIN [Concomitant]
  9. VITAMIN CAP [Concomitant]
  10. CALCIUM [Concomitant]
  11. ENALAPRIL MALEATE [Concomitant]
     Dosage: DAILY DOSE:25MG
  12. FOSAMAX [Concomitant]
  13. FLUOXETINE [Concomitant]

REACTIONS (6)
  - ATRIAL FIBRILLATION [None]
  - ATRIAL FLUTTER [None]
  - BLOOD PRESSURE INCREASED [None]
  - CHEST PAIN [None]
  - DYSPNOEA [None]
  - VENTRICULAR TACHYCARDIA [None]
